FAERS Safety Report 9766649 (Version 1)
Quarter: 2013Q4

REPORT INFORMATION
  Report Type: Spontaneous
  Country: US (occurrence: US)
  Receive Date: 20131217
  Receipt Date: 20131217
  Transmission Date: 20140711
  Serious: No
  Sender: FDA-Public Use
  Company Number: US-BIOGENIDEC-2013BI118243

PATIENT
  Age: 52 Year
  Sex: Female

DRUGS (3)
  1. TECFIDERA [Suspect]
     Indication: MULTIPLE SCLEROSIS
     Route: 048
     Dates: start: 201306
  2. TECFIDERA [Suspect]
     Indication: MULTIPLE SCLEROSIS
     Route: 048
     Dates: start: 2013
  3. STEROIDS [Concomitant]
     Route: 048

REACTIONS (7)
  - Fibromyalgia [Unknown]
  - Rheumatoid arthritis [Unknown]
  - Pain [Unknown]
  - Blood pressure increased [Unknown]
  - Asthenia [Unknown]
  - Prescribed underdose [Unknown]
  - Abdominal pain upper [Unknown]
